FAERS Safety Report 23908770 (Version 1)
Quarter: 2024Q2

REPORT INFORMATION
  Report Type: Spontaneous
  Country: US (occurrence: US)
  Receive Date: 20240528
  Receipt Date: 20240528
  Transmission Date: 20240716
  Serious: No
  Sender: FDA-Public Use
  Company Number: US-PERRIGO-23US006682

PATIENT
  Age: 55 Year
  Sex: Male
  Weight: 77.098 kg

DRUGS (3)
  1. MINOXIDIL [Suspect]
     Active Substance: MINOXIDIL
     Indication: Alopecia
     Dosage: HALF CAPFUL, BID
     Route: 061
     Dates: start: 202212, end: 20230527
  2. MINOXIDIL [Suspect]
     Active Substance: MINOXIDIL
     Dosage: HALF CAPFUL, QD
     Route: 061
     Dates: start: 20230528, end: 20230530
  3. ROSUVASTATIN [Concomitant]
     Active Substance: ROSUVASTATIN
     Indication: Blood cholesterol increased
     Dosage: 10 MG
     Route: 065
     Dates: start: 2002

REACTIONS (5)
  - Application site exfoliation [Recovering/Resolving]
  - Application site pruritus [Recovering/Resolving]
  - Application site erythema [Recovering/Resolving]
  - Application site pain [Recovering/Resolving]
  - Inappropriate schedule of product administration [Unknown]

NARRATIVE: CASE EVENT DATE: 20230524
